FAERS Safety Report 6287217-9 (Version None)
Quarter: 2009Q3

REPORT INFORMATION
  Report Type: 
  Country: None (occurrence: None)
  Receive Date: 20090728
  Receipt Date: 20050823
  Transmission Date: 20100115
  Serious: Yes (Death, Hospitalization)
  Sender: FDA-Public Use
  Company Number: PH-PFIZER INC-2005118295

PATIENT
  Age: 71 Year

DRUGS (8)
  1. LYRICA [Suspect]
     Indication: NEURALGIA
     Route: 048
     Dates: start: 20050811, end: 20050815
  2. HUMULIN N [Concomitant]
     Route: 065
     Dates: start: 20050809, end: 20050816
  3. ASPILETS [Concomitant]
     Route: 065
     Dates: start: 20050809, end: 20050814
  4. PLETAL [Concomitant]
     Route: 065
     Dates: start: 20050809, end: 20050814
  5. IRBESARTAN [Concomitant]
     Route: 065
     Dates: start: 20050809, end: 20050815
  6. HUMULIN R [Concomitant]
     Route: 065
     Dates: start: 20050809, end: 20050816
  7. CEPHADOL [Concomitant]
     Route: 065
     Dates: start: 20050809
  8. CRESTOR [Concomitant]
     Route: 065
     Dates: start: 20050810

REACTIONS (7)
  - ACUTE MYOCARDIAL INFARCTION [None]
  - ARTERIOSCLEROSIS [None]
  - CORONARY ARTERY DISEASE [None]
  - DIABETES MELLITUS [None]
  - HAEMOLYTIC ANAEMIA [None]
  - METABOLIC ENCEPHALOPATHY [None]
  - VOMITING [None]
